FAERS Safety Report 9133416 (Version 1)
Quarter: 2013Q1

REPORT INFORMATION
  Report Type: Report from Study
  Country: US (occurrence: US)
  Receive Date: 20130129
  Receipt Date: 20130129
  Transmission Date: 20140127
  Serious: Yes (Other)
  Sender: FDA-Public Use
  Company Number: US-ABBOTT-12P-163-0929081-00

PATIENT
  Sex: Female
  Weight: 51.76 kg

DRUGS (4)
  1. HUMIRA 40 MG/ 0.8 ML PRE-FILLED SYRINGE [Suspect]
     Indication: RHEUMATOID ARTHRITIS
     Route: 058
     Dates: end: 201003
  2. ORENCIA [Suspect]
     Indication: RHEUMATOID ARTHRITIS
     Dates: start: 2011, end: 201202
  3. UNKNOWN MEDICATION [Concomitant]
     Indication: OSTEOPOROSIS
     Dates: start: 2006
  4. TYLENOL [Concomitant]
     Indication: PAIN

REACTIONS (7)
  - Joint arthroplasty [Recovered/Resolved]
  - Joint arthroplasty [Recovered/Resolved]
  - Malaise [Recovered/Resolved]
  - Pneumonia [Recovered/Resolved]
  - Mobility decreased [Recovered/Resolved]
  - Pain [Recovered/Resolved]
  - Oral mucosal blistering [Recovered/Resolved]
